FAERS Safety Report 8776614 (Version 1)
Quarter: 2012Q4

REPORT INFORMATION
  Report Type: 
  Country: AU (occurrence: AU)
  Receive Date: 20120910
  Receipt Date: 20120910
  Transmission Date: 20130627
  Serious: Yes (Other)
  Sender: FDA-Public Use
  Company Number: PHHY2012AU076428

PATIENT
  Sex: Female

DRUGS (4)
  1. CLOZAPINE [Suspect]
  2. EFEXOR [Suspect]
  3. FOLIC ACID [Concomitant]
  4. IRON [Concomitant]

REACTIONS (3)
  - Neonatal respiratory distress syndrome [Unknown]
  - Tremor [Unknown]
  - Sneezing [Unknown]
